FAERS Safety Report 7156507-X (Version None)
Quarter: 2010Q4

REPORT INFORMATION
  Report Type: 
  Country: None (occurrence: None)
  Receive Date: 20101214
  Receipt Date: 20091123
  Transmission Date: 20110411
  Serious: No
  Sender: FDA-Public Use
  Company Number: US-ASTRAZENECA-2009SE28032

PATIENT
  Age: 78 Year
  Sex: Male
  Weight: 86.2 kg

DRUGS (7)
  1. CRESTOR [Suspect]
     Route: 048
     Dates: start: 20080101
  2. WARFARIN SODIUM [Concomitant]
     Indication: CARDIAC DISORDER
  3. METFORMIN [Concomitant]
     Indication: DIABETES MELLITUS
  4. GLYBURIDE [Concomitant]
     Indication: DIABETES MELLITUS
  5. ISOSORBIDE DINITRATE [Concomitant]
     Indication: CARDIAC DISORDER
  6. GENERIC COREG [Concomitant]
     Indication: CARDIAC DISORDER
  7. DIGOXIN [Concomitant]
     Indication: CARDIAC DISORDER

REACTIONS (2)
  - AMNESIA [None]
  - ANXIETY [None]
